FAERS Safety Report 4368408-0 (Version None)
Quarter: 2004Q2

REPORT INFORMATION
  Report Type: 
  Country: None (occurrence: None)
  Receive Date: 20040602
  Receipt Date: 20040525
  Transmission Date: 20050107
  Serious: Yes (Other)
  Sender: FDA-Public Use
  Company Number: ZW-GLAXOSMITHKLINE-B0333741A

PATIENT
  Age: 41 Year
  Sex: Female

DRUGS (5)
  1. COMBIVIR [Suspect]
     Indication: HIV INFECTION
     Dosage: 1TAB TWICE PER DAY
     Route: 048
  2. TENOFOVIR [Suspect]
     Indication: HIV INFECTION
     Dosage: 300MG PER DAY
     Route: 048
  3. ISONIAZID [Suspect]
  4. ETHAMBUTOL HCL [Concomitant]
  5. CO-TRIMOXAZOLE [Concomitant]

REACTIONS (5)
  - ABDOMINAL PAIN UPPER [None]
  - HEPATITIS [None]
  - JAUNDICE [None]
  - PYREXIA [None]
  - TRANSAMINASES INCREASED [None]
